FAERS Safety Report 25960016 (Version 1)
Quarter: 2025Q4

REPORT INFORMATION
  Report Type: Spontaneous
  Country: US (occurrence: US)
  Receive Date: 20251026
  Receipt Date: 20251026
  Transmission Date: 20260119
  Serious: No
  Sender: SANOFI AVENTIS
  Company Number: US-SA-2025SA314687

PATIENT
  Age: 74 Year
  Sex: Female

DRUGS (7)
  1. DUPIXENT [Suspect]
     Active Substance: DUPILUMAB
     Indication: Dermatitis atopic
     Dosage: 300 MG, QOW
     Route: 058
     Dates: start: 20250917
  2. MELATONIN [Concomitant]
     Active Substance: MELATONIN
  3. MOTRIN IB [Concomitant]
     Active Substance: IBUPROFEN
  4. TYLENOL [Concomitant]
     Active Substance: ACETAMINOPHEN
  5. VITAMIN B12 [Concomitant]
     Active Substance: CYANOCOBALAMIN
  6. VITAMIN C [Concomitant]
     Active Substance: ASCORBIC ACID
  7. ZINC [Concomitant]
     Active Substance: ZINC

REACTIONS (5)
  - Skin discomfort [Unknown]
  - Dermatitis atopic [Unknown]
  - Pruritus [Unknown]
  - Rash [Unknown]
  - Product dose omission issue [Unknown]

NARRATIVE: CASE EVENT DATE: 20250101
